FAERS Safety Report 9264765 (Version 1)
Quarter: 2013Q2

REPORT INFORMATION
  Report Type: Spontaneous
  Country: US (occurrence: None)
  Receive Date: 20130429
  Receipt Date: 20130429
  Transmission Date: 20140414
  Serious: Yes (Other)
  Sender: FDA-Public Use
  Company Number: None

PATIENT
  Age: 56 Year
  Sex: Male
  Weight: 99.79 kg

DRUGS (1)
  1. ANDROGEL [Suspect]
     Dosage: 1 PUMP -1.25G OF GEL- DAILY TOP
     Route: 061
     Dates: start: 20121015, end: 20130226

REACTIONS (2)
  - Drug hypersensitivity [None]
  - Infection [None]
